FAERS Safety Report 16539865 (Version 1)
Quarter: 2019Q3

REPORT INFORMATION
  Report Type: Spontaneous
  Country: US (occurrence: US)
  Receive Date: 20190708
  Receipt Date: 20190708
  Transmission Date: 20191004
  Serious: No
  Sender: FDA-Public Use
  Company Number: US-BAYER-2019-128002

PATIENT
  Age: 93 Year
  Sex: Female
  Weight: 44 kg

DRUGS (2)
  1. REFLUXAID [Concomitant]
  2. MIRALAX [Suspect]
     Active Substance: POLYETHYLENE GLYCOL 3350
     Indication: GASTROINTESTINAL DISORDER
     Dosage: 1/2 TEASPOON
     Route: 048
     Dates: start: 20190630, end: 20190703

REACTIONS (2)
  - Incorrect dose administered [Recovered/Resolved]
  - Abdominal pain upper [Not Recovered/Not Resolved]

NARRATIVE: CASE EVENT DATE: 20190630
